FAERS Safety Report 20074611 (Version 1)
Quarter: 2021Q4

REPORT INFORMATION
  Report Type: Spontaneous
  Country: GB (occurrence: GB)
  Receive Date: 20211116
  Receipt Date: 20211116
  Transmission Date: 20220303
  Serious: Yes (Hospitalization, Other)
  Sender: FDA-Public Use
  Company Number: GB-SA-2021SA357735

PATIENT
  Age: 19 Year
  Sex: Female

DRUGS (9)
  1. DOCETAXEL [Suspect]
     Active Substance: DOCETAXEL
     Indication: Synovial sarcoma
     Dosage: 143 MG
     Route: 042
     Dates: start: 20210717
  2. GEMCITABINE HYDROCHLORIDE [Suspect]
     Active Substance: GEMCITABINE HYDROCHLORIDE
     Indication: Synovial sarcoma
     Dosage: 1710 MG
     Route: 042
     Dates: start: 20210720
  3. DEXAMETHASONE [Concomitant]
     Active Substance: DEXAMETHASONE
     Dosage: UNK
     Dates: start: 20210719
  4. DOMPERIDONE [Concomitant]
     Active Substance: DOMPERIDONE
     Dosage: UNK; ;
     Dates: start: 20210719
  5. GLYCOSAMINOGLYCANS [Concomitant]
     Active Substance: GLYCOSAMINOGLYCANS
     Dosage: UNK; ;
     Dates: start: 20210906
  6. METOCLOPRAMIDE [Concomitant]
     Active Substance: METOCLOPRAMIDE
     Dosage: UNK; ;
     Dates: start: 20210720
  7. NORETHINDRONE [Concomitant]
     Active Substance: NORETHINDRONE
     Dosage: UNK; ;
     Dates: start: 20210814
  8. NORETHINDRONE [Concomitant]
     Active Substance: NORETHINDRONE
     Dosage: UNK
  9. ONDANSETRON [Concomitant]
     Active Substance: ONDANSETRON
     Dosage: UNK; ;
     Dates: start: 20210727

REACTIONS (3)
  - Pneumonia [Unknown]
  - C-reactive protein increased [Unknown]
  - Cough [Unknown]

NARRATIVE: CASE EVENT DATE: 20210926
